FAERS Safety Report 4630177-4 (Version None)
Quarter: 2005Q2

REPORT INFORMATION
  Report Type: 
  Country: None (occurrence: None)
  Receive Date: 20050406
  Receipt Date: 20050228
  Transmission Date: 20051028
  Serious: Yes (Hospitalization)
  Sender: FDA-Public Use
  Company Number: PH-SANOFI-SYNTHELABO-A01200501097

PATIENT
  Age: 74 Year
  Sex: Male

DRUGS (1)
  1. ZOLPIDEM - TABLET - 10 MG [Suspect]
     Dosage: 10 MG OD ORAL
     Route: 048
     Dates: start: 20020101

REACTIONS (1)
  - MUSCULOSKELETAL STIFFNESS [None]
